FAERS Safety Report 9887975 (Version 2)
Quarter: 2014Q1

REPORT INFORMATION
  Report Type: Report from Study
  Country: JP (occurrence: JP)
  Receive Date: 20140211
  Receipt Date: 20140211
  Transmission Date: 20141002
  Serious: Yes (Life-Threatening, Hospitalization)
  Sender: FDA-Public Use
  Company Number: JP-SHIRE-ALL1-2013-00889

PATIENT
  Age: 61 Year
  Sex: Male

DRUGS (21)
  1. 405 (LANTHANUM CARBONATE) [Suspect]
     Indication: HYPERPHOSPHATAEMIA
     Dosage: 2250 MG, OTHER (TOTAL DAILY DOSE)
     Route: 048
     Dates: start: 20100708
  2. 405 (LANTHANUM CARBONATE) [Suspect]
     Dosage: 750 MG, OTHER (TOTAL DAILY DOSE)
     Route: 048
     Dates: start: 20091026, end: 20100105
  3. 405 (LANTHANUM CARBONATE) [Suspect]
     Dosage: 1500 MG, OTHER (TOTAL DAILY DOSE)
     Route: 048
     Dates: start: 20100106, end: 20100707
  4. TANKARU [Concomitant]
     Indication: HYPERPHOSPHATAEMIA
     Dosage: 4.5 G, UNKNOWN (TOTAL DAILY DOSE)
     Route: 048
     Dates: end: 20091025
  5. TANKARU [Concomitant]
     Dosage: 3.0 G, UNKNOWN (TOTAL DAILY DOSE)
     Route: 048
     Dates: start: 20091026, end: 20110608
  6. PHOSBLOCK [Concomitant]
     Indication: HYPERPHOSPHATAEMIA
     Dosage: 3.75 G, OTHER (TOTAL DAILY DOSE)
     Route: 048
     Dates: end: 20091221
  7. PHOSBLOCK [Concomitant]
     Dosage: 2250 MG, OTHER (TOTAL DAILY DOSE)
     Route: 048
     Dates: start: 20110803, end: 20110906
  8. PHOSBLOCK [Concomitant]
     Dosage: 3000 MG, OTHER (TOTAL DAILY DOSE)
     Route: 048
     Dates: start: 20110907, end: 20120424
  9. PHOSBLOCK [Concomitant]
     Dosage: 1500 MG, OTHER (TOTAL DAILY DOSE)
     Route: 048
     Dates: start: 20120425, end: 20130614
  10. ALFAROL [Concomitant]
     Indication: HYPOCALCAEMIA
     Dosage: 0.25 ?G, OTHER (PER DAY)
     Route: 048
     Dates: start: 20110803
  11. KALIMATE [Concomitant]
     Indication: PRODUCT USED FOR UNKNOWN INDICATION
     Dosage: 15 G, UNKNOWN
     Route: 048
  12. CARDENALIN [Concomitant]
     Indication: PRODUCT USED FOR UNKNOWN INDICATION
     Dosage: 2 MG, UNKNOWN
     Route: 048
  13. NU-LOTAN [Concomitant]
     Indication: PRODUCT USED FOR UNKNOWN INDICATION
     Dosage: 50 MG, UNKNOWN
     Route: 048
  14. ZYLORIC [Concomitant]
     Indication: PRODUCT USED FOR UNKNOWN INDICATION
     Dosage: 100 MG, UNKNOWN
     Route: 048
  15. BUFFERIN                           /01754001/ [Concomitant]
     Indication: PRODUCT USED FOR UNKNOWN INDICATION
     Dosage: 81 MG, UNKNOWN
     Route: 048
  16. PURSENNID                          /00571902/ [Concomitant]
     Indication: PRODUCT USED FOR UNKNOWN INDICATION
     Dosage: 3 DF, UNKNOWN
     Route: 048
  17. ADALAT L [Concomitant]
     Indication: PRODUCT USED FOR UNKNOWN INDICATION
     Dosage: 60 MG, UNKNOWN
     Route: 048
  18. LAXOBERON [Concomitant]
     Indication: PRODUCT USED FOR UNKNOWN INDICATION
     Dosage: 15 GTT, UNKNOWN
     Route: 048
  19. LIPLE [Concomitant]
     Indication: SKIN ULCER
     Dosage: 10 ?G, UNKNOWN
     Route: 042
  20. FESIN                              /00023550/ [Concomitant]
     Indication: PRODUCT USED FOR UNKNOWN INDICATION
     Dosage: 1 DF, UNKNOWN
     Route: 042
  21. NESP [Concomitant]
     Indication: PRODUCT USED FOR UNKNOWN INDICATION
     Dosage: 20 ?G, UNKNOWN
     Route: 042

REACTIONS (5)
  - Peripheral arterial occlusive disease [Recovering/Resolving]
  - Cardiac failure congestive [Recovering/Resolving]
  - Aortic valve stenosis [Recovering/Resolving]
  - Myocardial ischaemia [Recovering/Resolving]
  - Tachyarrhythmia [Recovering/Resolving]
